FAERS Safety Report 9720820 (Version 1)
Quarter: 2013Q4

REPORT INFORMATION
  Report Type: Report from Study
  Country: LB (occurrence: LB)
  Receive Date: 20131129
  Receipt Date: 20131129
  Transmission Date: 20140711
  Serious: Yes (Hospitalization)
  Sender: FDA-Public Use
  Company Number: LB-SA-2013SA122188

PATIENT
  Age: 53 Year
  Sex: Male

DRUGS (5)
  1. LANTUS SOLOSTAR [Suspect]
     Indication: DIABETES MELLITUS
     Dosage: DOSE: 40-50 U
     Route: 058
  2. HUMALOG [Concomitant]
     Indication: DIABETES MELLITUS
     Route: 058
  3. AMLODIPINE (SALT NOT SPECIFIED) [Concomitant]
     Route: 048
  4. LIPANTHYL [Concomitant]
     Route: 048
  5. SOLOSTAR [Concomitant]
     Indication: DEVICE THERAPY

REACTIONS (2)
  - Myocardial infarction [Recovered/Resolved]
  - Pyrexia [Recovered/Resolved]
